FAERS Safety Report 13706743 (Version 1)
Quarter: 2017Q2

REPORT INFORMATION
  Report Type: Spontaneous
  Country: US (occurrence: US)
  Receive Date: 20170629
  Receipt Date: 20170629
  Transmission Date: 20170830
  Serious: Yes (Hospitalization)
  Sender: FDA-Public Use
  Company Number: None

PATIENT
  Age: 68 Year
  Sex: Female
  Weight: 109 kg

DRUGS (1)
  1. GEMCITABINE [Suspect]
     Active Substance: GEMCITABINE\GEMCITABINE HYDROCHLORIDE
     Indication: BREAST CANCER STAGE IV
     Route: 042
     Dates: start: 20170330, end: 20170330

REACTIONS (7)
  - Asthenia [None]
  - Acute generalised exanthematous pustulosis [None]
  - Myalgia [None]
  - Tachycardia [None]
  - Pyrexia [None]
  - Mental disorder [None]
  - Pain [None]

NARRATIVE: CASE EVENT DATE: 20170409
